FAERS Safety Report 13596664 (Version 1)
Quarter: 2017Q2

REPORT INFORMATION
  Report Type: Spontaneous
  Country: US (occurrence: US)
  Receive Date: 20170530
  Receipt Date: 20170530
  Transmission Date: 20170830
  Serious: No
  Sender: FDA-Public Use
  Company Number: None

PATIENT
  Sex: Male

DRUGS (1)
  1. CHORIONIC GONADOTROPIN [Suspect]
     Active Substance: CHORIOGONADOTROPIN ALFA
     Indication: TESTICULAR FAILURE
     Dosage: 1000 UNITS
     Route: 030
     Dates: start: 20161207

REACTIONS (2)
  - Affect lability [None]
  - Confusional state [None]
